FAERS Safety Report 23784515 (Version 1)
Quarter: 2024Q2

REPORT INFORMATION
  Report Type: Spontaneous
  Country: US (occurrence: None)
  Receive Date: 20240425
  Receipt Date: 20240425
  Transmission Date: 20240715
  Serious: No
  Sender: FDA-Public Use
  Company Number: None

PATIENT
  Age: 19 Year
  Sex: Female
  Weight: 56.25 kg

DRUGS (6)
  1. LAMICTAL [Suspect]
     Active Substance: LAMOTRIGINE
     Indication: Bipolar II disorder
     Dosage: OTHER QUANTITY : 90 TABLET(S);?FREQUENCY : AT BEDTIME;?
     Route: 048
     Dates: start: 20240213
  2. LAMICTAL [Concomitant]
     Active Substance: LAMOTRIGINE
  3. VYVANSE [Concomitant]
     Active Substance: LISDEXAMFETAMINE DIMESYLATE
  4. FLUDROCORTISONE [Concomitant]
     Active Substance: FLUDROCORTISONE
  5. MIDODRINE [Concomitant]
     Active Substance: MIDODRINE
  6. LOESTRIN NOS [Concomitant]
     Active Substance: ETHINYL ESTRADIOL\NORETHINDRONE ACETATE

REACTIONS (2)
  - Decreased appetite [None]
  - Therapy change [None]

NARRATIVE: CASE EVENT DATE: 20240301
